FAERS Safety Report 17230697 (Version 2)
Quarter: 2024Q1

REPORT INFORMATION
  Report Type: Spontaneous
  Country: US (occurrence: US)
  Receive Date: 20200103
  Receipt Date: 20240109
  Transmission Date: 20240409
  Serious: No
  Sender: FDA-Public Use
  Company Number: US-JNJFOC-20200103219

PATIENT
  Sex: Male

DRUGS (3)
  1. RISPERDAL [Suspect]
     Active Substance: RISPERIDONE
     Indication: Hallucination, auditory
     Route: 048
     Dates: start: 20020909
  2. RISPERDAL [Suspect]
     Active Substance: RISPERIDONE
     Indication: Aggression
     Route: 048
     Dates: start: 20050302
  3. RISPERDAL [Suspect]
     Active Substance: RISPERIDONE
     Indication: Sleep disorder

REACTIONS (2)
  - Gynaecomastia [Unknown]
  - Emotional disorder [Unknown]
